FAERS Safety Report 7362200-0 (Version None)
Quarter: 2011Q1

REPORT INFORMATION
  Report Type: 
  Country: None (occurrence: None)
  Receive Date: 20110315
  Receipt Date: 20110315
  Transmission Date: 20110831
  Serious: No
  Sender: FDA-Public Use
  Company Number: None

PATIENT
  Sex: Female
  Weight: 55.7924 kg

DRUGS (4)
  1. FLUOXETINE [Concomitant]
  2. LOTREL [Suspect]
     Indication: HYPERTENSION
     Dosage: 5-10MG ONCE ORAL
     Route: 048
  3. LORAZEPAM [Concomitant]
  4. CLONAZEPAM [Concomitant]

REACTIONS (1)
  - HEADACHE [None]
